FAERS Safety Report 9238011 (Version 2)
Quarter: 2013Q3

REPORT INFORMATION
  Report Type: Spontaneous
  Country: US (occurrence: US)
  Receive Date: 20130418
  Receipt Date: 20130708
  Transmission Date: 20140515
  Serious: Yes (Hospitalization)
  Sender: FDA-Public Use
  Company Number: US-BAYER-2013-048847

PATIENT
  Age: 24 Year
  Sex: Female
  Weight: 108.84 kg

DRUGS (5)
  1. YASMIN [Suspect]
     Dosage: UNK
     Dates: start: 200609, end: 200701
  2. PROMETHAZINE [Concomitant]
     Dosage: UNK UNK, PRN
  3. PRENATAL VITAMINS [Concomitant]
     Dosage: AS NEEDED
  4. HYOSCYAMINE [Concomitant]
     Dosage: AS NEEDED
  5. VICODIN [Concomitant]
     Dosage: AS NEEDED

REACTIONS (2)
  - Pulmonary embolism [None]
  - Injury [None]
